FAERS Safety Report 8420109-5 (Version None)
Quarter: 2012Q2

REPORT INFORMATION
  Report Type: 
  Country: None (occurrence: None)
  Receive Date: 20120607
  Receipt Date: 20120604
  Transmission Date: 20120825
  Serious: Yes (Hospitalization, Other)
  Sender: FDA-Public Use
  Company Number: US-TEVA-341565USA

PATIENT
  Age: 62 Year
  Sex: Female

DRUGS (6)
  1. FUROSEMIDE [Suspect]
     Indication: SUICIDE ATTEMPT
  2. ACETAMINOPHEN [Suspect]
     Indication: SUICIDE ATTEMPT
  3. FUROSEMIDE [Suspect]
     Dosage: 40 MG DAILY
  4. TAMOXIFEN CITRATE [Concomitant]
     Route: 065
  5. CLONIDINE [Suspect]
     Indication: SUICIDE ATTEMPT
  6. CLONIDINE [Suspect]
     Indication: HOT FLUSH

REACTIONS (5)
  - INTENTIONAL OVERDOSE [None]
  - SUICIDE ATTEMPT [None]
  - HYPOTHERMIA [None]
  - HYPOTENSION [None]
  - BRADYCARDIA [None]
